FAERS Safety Report 21043968 (Version 2)
Quarter: 2022Q4

REPORT INFORMATION
  Report Type: Report from Study
  Country: BR (occurrence: BR)
  Receive Date: 20220705
  Receipt Date: 20221130
  Transmission Date: 20230112
  Serious: Yes (Other)
  Sender: FDA-Public Use
  Company Number: BR-TAKEDA-2022TUS030901

PATIENT
  Age: 61 Year
  Sex: Female

DRUGS (4)
  1. VEDOLIZUMAB [Suspect]
     Active Substance: VEDOLIZUMAB
     Indication: Colitis ulcerative
     Dosage: 300 MILLIGRAM
     Route: 042
     Dates: start: 20220126, end: 20220927
  2. MESALAMINE [Suspect]
     Active Substance: MESALAMINE
     Indication: Product used for unknown indication
     Dosage: 1600 MILLIGRAM, BID
     Route: 065
     Dates: start: 20220504
  3. DICLOFENAC SODIUM\TRAMADOL HYDROCHLORIDE [Suspect]
     Active Substance: DICLOFENAC SODIUM\TRAMADOL HYDROCHLORIDE
     Indication: Arthralgia
     Dosage: UNK UNK, QID
     Route: 065
     Dates: start: 20220503
  4. PREDNISONE [Concomitant]
     Active Substance: PREDNISONE
     Dosage: 20 MILLIGRAM

REACTIONS (12)
  - Haemorrhage [Not Recovered/Not Resolved]
  - Colitis ulcerative [Unknown]
  - Autoimmune thyroiditis [Unknown]
  - Large intestinal haemorrhage [Unknown]
  - Sepsis [Unknown]
  - Frequent bowel movements [Not Recovered/Not Resolved]
  - Anaemia [Unknown]
  - Asthenia [Unknown]
  - Blood pressure increased [Unknown]
  - Arthralgia [Recovering/Resolving]
  - Nausea [Recovered/Resolved]
  - Drug ineffective [Not Recovered/Not Resolved]

NARRATIVE: CASE EVENT DATE: 20220420
